FAERS Safety Report 6775358-9 (Version None)
Quarter: 2010Q2

REPORT INFORMATION
  Report Type: 
  Country: None (occurrence: None)
  Receive Date: 20100617
  Receipt Date: 20100615
  Transmission Date: 20101027
  Serious: Yes (Death)
  Sender: FDA-Public Use
  Company Number: US-ELI_LILLY_AND_COMPANY-US201006004035

PATIENT
  Sex: Female

DRUGS (2)
  1. HUMULIN 70/30 [Suspect]
     Dosage: 78 U, EACH MORNING
     Dates: end: 20090604
  2. HUMULIN 70/30 [Suspect]
     Dosage: 74 U, EACH EVENING
     Dates: end: 20090604

REACTIONS (5)
  - ARTHRITIS [None]
  - GASTROINTESTINAL DISORDER [None]
  - LIGAMENT RUPTURE [None]
  - MYOCARDIAL INFARCTION [None]
  - VOMITING [None]
